FAERS Safety Report 7692572-9 (Version None)
Quarter: 2011Q3

REPORT INFORMATION
  Report Type: 
  Country: None (occurrence: None)
  Receive Date: 20110819
  Receipt Date: 20110811
  Transmission Date: 20111222
  Serious: Yes (Death, Hospitalization)
  Sender: FDA-Public Use
  Company Number: US-BIOGENIDEC-2008BI013983

PATIENT
  Age: 63 Year
  Sex: Female

DRUGS (1)
  1. AVONEX [Suspect]
     Indication: MULTIPLE SCLEROSIS
     Route: 030
     Dates: start: 19981005

REACTIONS (5)
  - PAIN [None]
  - SPINAL CORD COMPRESSION [None]
  - HEMIPARESIS [None]
  - MULTIPLE MYELOMA [None]
  - MUSCULAR WEAKNESS [None]
